FAERS Safety Report 16429124 (Version 2)
Quarter: 2019Q3

REPORT INFORMATION
  Report Type: Spontaneous
  Country: US (occurrence: US)
  Receive Date: 20190614
  Receipt Date: 20190726
  Transmission Date: 20191004
  Serious: No
  Sender: FDA-Public Use
  Company Number: US-ASTRAZENECA-2019SE75551

PATIENT
  Age: 9022 Day
  Sex: Female
  Weight: 79.4 kg

DRUGS (4)
  1. FASENRA [Suspect]
     Active Substance: BENRALIZUMAB
     Indication: ASTHMA
     Route: 058
     Dates: start: 20190306
  2. FASENRA [Suspect]
     Active Substance: BENRALIZUMAB
     Indication: ASTHMA
     Route: 058
     Dates: start: 20190425, end: 20190516
  3. FASENRA [Suspect]
     Active Substance: BENRALIZUMAB
     Indication: ASTHMA
     Route: 058
     Dates: start: 20190425, end: 20190516
  4. FASENRA [Suspect]
     Active Substance: BENRALIZUMAB
     Indication: ASTHMA
     Route: 058
     Dates: start: 20190306

REACTIONS (6)
  - Pharyngitis [Recovered/Resolved]
  - Pyrexia [Unknown]
  - Pharyngitis streptococcal [Not Recovered/Not Resolved]
  - Headache [Unknown]
  - Inappropriate schedule of product administration [Unknown]
  - Product dose omission [Unknown]

NARRATIVE: CASE EVENT DATE: 20190516
